FAERS Safety Report 5699962-4 (Version None)
Quarter: 2008Q2

REPORT INFORMATION
  Report Type: 
  Country: None (occurrence: None)
  Receive Date: 20080410
  Receipt Date: 20080408
  Transmission Date: 20081010
  Serious: Yes (Other)
  Sender: FDA-Public Use
  Company Number: A0721497A

PATIENT
  Age: 81 Year
  Sex: Male

DRUGS (1)
  1. ALLI [Suspect]
     Route: 048
     Dates: start: 20070901

REACTIONS (3)
  - DEAFNESS [None]
  - NASOPHARYNGITIS [None]
  - SINUSITIS [None]
